FAERS Safety Report 18655035 (Version 1)
Quarter: 2020Q4

REPORT INFORMATION
  Report Type: Spontaneous
  Country: US (occurrence: US)
  Receive Date: 20201223
  Receipt Date: 20201223
  Transmission Date: 20210114
  Serious: No
  Sender: FDA-Public Use
  Company Number: None

PATIENT
  Age: 73 Year
  Sex: Female
  Weight: 72 kg

DRUGS (11)
  1. LIPITOR [Concomitant]
     Active Substance: ATORVASTATIN CALCIUM
  2. AMLODIPINE [Concomitant]
     Active Substance: AMLODIPINE BESYLATE
  3. HYZAAR [Concomitant]
     Active Substance: HYDROCHLOROTHIAZIDE\LOSARTAN POTASSIUM
  4. TOPROL XL [Concomitant]
     Active Substance: METOPROLOL SUCCINATE
  5. MTX [Concomitant]
     Active Substance: METHOTREXATE SODIUM
  6. XYZAL [Concomitant]
     Active Substance: LEVOCETIRIZINE DIHYDROCHLORIDE
  7. FOLIC ACID. [Concomitant]
     Active Substance: FOLIC ACID
  8. CIMZIA [Suspect]
     Active Substance: CERTOLIZUMAB PEGOL
     Indication: RHEUMATOID ARTHRITIS
     Dosage: ?          OTHER ROUTE:SUBQ INJECTION?
     Route: 058
     Dates: start: 20201112, end: 20201112
  9. VIT D [Concomitant]
     Active Substance: VITAMIN D NOS
  10. FISH OIL [Concomitant]
     Active Substance: FISH OIL
  11. HYDROXYCHLOROQUIN [Concomitant]
     Active Substance: HYDROXYCHLOROQUINE SULFATE

REACTIONS (17)
  - Injection site rash [None]
  - Palmar erythema [None]
  - Nausea [None]
  - Chills [None]
  - Corneal oedema [None]
  - Nasopharyngitis [None]
  - Asthenia [None]
  - Fatigue [None]
  - Pruritus [None]
  - Vision blurred [None]
  - Rash erythematous [None]
  - Discomfort [None]
  - Gait disturbance [None]
  - Conjunctivitis [None]
  - Eyelid oedema [None]
  - Myalgia [None]
  - Lacrimation increased [None]

NARRATIVE: CASE EVENT DATE: 20201112
